FAERS Safety Report 23167122 (Version 8)
Quarter: 2025Q1

REPORT INFORMATION
  Report Type: Report from Study
  Country: US (occurrence: US)
  Receive Date: 20231109
  Receipt Date: 20250228
  Transmission Date: 20250409
  Serious: Yes (Hospitalization, Other)
  Sender: TAKEDA
  Company Number: US-TAKEDA-2023TUS092930

PATIENT
  Age: 79 Year
  Sex: Male
  Weight: 91 kg

DRUGS (12)
  1. TEDUGLUTIDE [Suspect]
     Active Substance: TEDUGLUTIDE
     Indication: Short-bowel syndrome
     Dosage: 4.69 MILLIGRAM, QD
  2. TEDUGLUTIDE [Suspect]
     Active Substance: TEDUGLUTIDE
     Dosage: 4.69 MILLIGRAM, QD
  3. TEDUGLUTIDE [Suspect]
     Active Substance: TEDUGLUTIDE
     Dosage: 4.69 MILLIGRAM, QD
  4. TEDUGLUTIDE [Suspect]
     Active Substance: TEDUGLUTIDE
     Dosage: 4.69 MILLIGRAM, QD
  5. TEDUGLUTIDE [Suspect]
     Active Substance: TEDUGLUTIDE
     Dosage: 4.69 MILLIGRAM, QD
  6. TEDUGLUTIDE [Suspect]
     Active Substance: TEDUGLUTIDE
     Dosage: 4.69 MILLIGRAM, QD
  7. TEDUGLUTIDE [Suspect]
     Active Substance: TEDUGLUTIDE
  8. TEDUGLUTIDE [Suspect]
     Active Substance: TEDUGLUTIDE
     Dosage: 0.37 MILLILITER, QD
  9. TEDUGLUTIDE [Suspect]
     Active Substance: TEDUGLUTIDE
     Dosage: 0.37 MILLILITER, QD
  10. IRON [Concomitant]
     Active Substance: IRON
  11. MAGNESIUM [Concomitant]
     Active Substance: MAGNESIUM
  12. TPN [Concomitant]
     Active Substance: AMINO ACIDS\DEXTROSE\ELECTROLYTES NOS\SOYBEAN OIL

REACTIONS (16)
  - Rectal haemorrhage [Unknown]
  - Gastrointestinal stoma output increased [Unknown]
  - Dehydration [Unknown]
  - Wound [Unknown]
  - Fistula [Unknown]
  - Skin irritation [Unknown]
  - Fistula discharge [Unknown]
  - Pain of skin [Unknown]
  - Device leakage [Unknown]
  - Syringe issue [Unknown]
  - Hypophagia [Unknown]
  - Product dose omission issue [Unknown]
  - Incorrect dose administered [Not Recovered/Not Resolved]
  - Circumstance or information capable of leading to medication error [Unknown]
  - Product use issue [Unknown]
  - Wrong technique in product usage process [Unknown]

NARRATIVE: CASE EVENT DATE: 20240110
